FAERS Safety Report 14335913 (Version 7)
Quarter: 2021Q4

REPORT INFORMATION
  Report Type: Other
  Country: CA (occurrence: None)
  Receive Date: 20171229
  Receipt Date: 20211222
  Transmission Date: 20220303
  Serious: No
  Sender: FDA-Public Use
  Company Number: CA-ROCHE-2048077

PATIENT
  Age: 47 Year
  Sex: Male

DRUGS (3)
  1. OCREVUS [Suspect]
     Active Substance: OCRELIZUMAB
     Indication: Relapsing-remitting multiple sclerosis
     Dosage: LOADING DOSE 300 MG IV Q 2 WEEKS X 2 DOSES
     Route: 041
     Dates: start: 20171215
  2. VITAMIN C [Concomitant]
     Active Substance: ASCORBIC ACID
  3. QUERCETIN [Concomitant]
     Active Substance: QUERCETIN

REACTIONS (5)
  - Oropharyngeal pain [Recovered/Resolved]
  - Nasopharyngitis [Not Recovered/Not Resolved]
  - Limb discomfort [Not Recovered/Not Resolved]
  - Pain [Unknown]
  - Musculoskeletal stiffness [Unknown]

NARRATIVE: CASE EVENT DATE: 20171217
